FAERS Safety Report 10069725 (Version 1)
Quarter: 2014Q2

REPORT INFORMATION
  Report Type: Spontaneous
  Country: CA (occurrence: None)
  Receive Date: 20140409
  Receipt Date: 20140409
  Transmission Date: 20141212
  Serious: Yes (Disabling)
  Sender: FDA-Public Use
  Company Number: None

PATIENT
  Age: 67 Year
  Sex: Female
  Weight: 72.12 kg

DRUGS (1)
  1. ATORVASTATIN [Suspect]
     Indication: DIABETES MELLITUS
     Route: 048

REACTIONS (6)
  - Fatigue [None]
  - Muscular weakness [None]
  - Fall [None]
  - Paralysis [None]
  - Asthenia [None]
  - Polymyositis [None]
